FAERS Safety Report 6249667-6 (Version None)
Quarter: 2009Q2

REPORT INFORMATION
  Report Type: 
  Country: None (occurrence: None)
  Receive Date: 20090625
  Receipt Date: 20090615
  Transmission Date: 20091009
  Serious: Yes (Life-Threatening)
  Sender: FDA-Public Use
  Company Number: 1000007006

PATIENT
  Age: 30 Year
  Sex: Male

DRUGS (2)
  1. LEXAPRO [Suspect]
     Dosage: 5 MG (5 MG, 1 IN 1 D),ORAL
     Route: 048
     Dates: start: 20070706
  2. XANAX [Suspect]
     Dosage: 0.25 MG (0.25 MG, 1 IN 1 D), ORAL
     Route: 048
     Dates: start: 20070706

REACTIONS (5)
  - GENERAL PHYSICAL HEALTH DETERIORATION [None]
  - GUN SHOT WOUND [None]
  - MENTAL IMPAIRMENT [None]
  - SUICIDAL IDEATION [None]
  - SUICIDE ATTEMPT [None]
